FAERS Safety Report 4697393-7 (Version None)
Quarter: 2005Q2

REPORT INFORMATION
  Report Type: 
  Country: None (occurrence: None)
  Receive Date: 20050621
  Receipt Date: 20050606
  Transmission Date: 20051028
  Serious: No
  Sender: FDA-Public Use
  Company Number: USA0506100082

PATIENT
  Age: 13 Year
  Sex: Male

DRUGS (3)
  1. STRATTERA [Suspect]
     Dosage: 40 MG
     Dates: start: 20030301, end: 20050501
  2. ZYRTEC [Concomitant]
  3. SINGULAIR (MONTELUKAST /01362601/) [Concomitant]

REACTIONS (1)
  - HEPATIC ENZYME ABNORMAL [None]
